FAERS Safety Report 4441695-6 (Version None)
Quarter: 2004Q3

REPORT INFORMATION
  Report Type: 
  Country: None (occurrence: None)
  Receive Date: 20040907
  Receipt Date: 20040901
  Transmission Date: 20050211
  Serious: Yes (Death)
  Sender: FDA-Public Use
  Company Number: PHEH2004US09476

PATIENT
  Age: 40 Year
  Sex: Male

DRUGS (2)
  1. CLOZARIL [Suspect]
     Indication: SCHIZOPHRENIA
     Dosage: 800 MG/DAY
     Route: 048
  2. DEPAKOTE [Concomitant]

REACTIONS (1)
  - MYOCARDIAL INFARCTION [None]
